FAERS Safety Report 4545024-9 (Version None)
Quarter: 2005Q1

REPORT INFORMATION
  Report Type: 
  Country: None (occurrence: None)
  Receive Date: 20050105
  Receipt Date: 20041228
  Transmission Date: 20050727
  Serious: Yes (Hospitalization, Other)
  Sender: FDA-Public Use
  Company Number: US-GLAXOSMITHKLINE-A0538715A

PATIENT
  Age: 64 Year
  Sex: Male
  Weight: 79.5 kg

DRUGS (3)
  1. TUMS [Suspect]
     Indication: GASTROOESOPHAGEAL REFLUX DISEASE
     Route: 048
     Dates: start: 19840101, end: 20030101
  2. TUMS SMOOTH DISSOLVE TABLETS, TROPICAL SMOOTHIES [Suspect]
     Indication: GASTROOESOPHAGEAL REFLUX DISEASE
     Route: 048
     Dates: start: 20030101, end: 20040101
  3. ZOCOR [Concomitant]
     Indication: BLOOD CHOLESTEROL INCREASED
     Route: 048

REACTIONS (5)
  - BODY TEMPERATURE DECREASED [None]
  - CORONARY ARTERY OCCLUSION [None]
  - FATIGUE [None]
  - HYPERSOMNIA [None]
  - HYPERTENSION [None]
